FAERS Safety Report 7767316-2 (Version None)
Quarter: 2011Q3

REPORT INFORMATION
  Report Type: 
  Country: None (occurrence: None)
  Receive Date: 20110922
  Receipt Date: 20110325
  Transmission Date: 20111222
  Serious: No
  Sender: FDA-Public Use
  Company Number: US-ASTRAZENECA-2011SE17240

PATIENT
  Age: 57 Year
  Sex: Male
  Weight: 136.1 kg

DRUGS (5)
  1. NEXIUM [Concomitant]
  2. SEROQUEL XR [Suspect]
     Indication: BIPOLAR II DISORDER
     Dosage: 300 MG HS AND 50 MG BID
     Route: 048
     Dates: start: 20010101
  3. ACTOS [Concomitant]
  4. RHINOCORT [Concomitant]
  5. LEXAPRO [Concomitant]

REACTIONS (2)
  - DIABETES MELLITUS [None]
  - NEUROPATHY PERIPHERAL [None]
